FAERS Safety Report 13959944 (Version 3)
Quarter: 2018Q1

REPORT INFORMATION
  Report Type: Spontaneous
  Country: JP (occurrence: JP)
  Receive Date: 20170911
  Receipt Date: 20180214
  Transmission Date: 20180508
  Serious: Yes (Hospitalization, Other)
  Sender: FDA-Public Use
  Company Number: JP-ELI_LILLY_AND_COMPANY-JP201708012315

PATIENT
  Age: 87 Year
  Sex: Male
  Weight: 53 kg

DRUGS (6)
  1. CARBOPLATIN. [Concomitant]
     Active Substance: CARBOPLATIN
     Indication: LUNG ADENOCARCINOMA RECURRENT
     Dosage: 450 MG, SINGLE
     Route: 041
     Dates: start: 20170117, end: 20170117
  2. ALIMTA [Suspect]
     Active Substance: PEMETREXED DISODIUM
     Indication: LUNG ADENOCARCINOMA RECURRENT
     Dosage: 800 MG, OTHER
     Route: 041
     Dates: start: 20170117, end: 20170228
  3. FURIC [Concomitant]
     Indication: PROPHYLAXIS
     Route: 065
  4. FRESMIN S                          /00091803/ [Concomitant]
     Dosage: 1 MG, UNKNOWN
     Route: 030
     Dates: start: 20170110
  5. BEVACIZUMAB. [Concomitant]
     Active Substance: BEVACIZUMAB
     Indication: LUNG ADENOCARCINOMA RECURRENT
     Dosage: 840 MG, OTHER
     Route: 041
     Dates: start: 20170117, end: 20170228
  6. PANVITAN                           /05664401/ [Concomitant]
     Dosage: UNK
     Route: 065
     Dates: start: 20170110

REACTIONS (10)
  - Decreased appetite [Unknown]
  - Anaemia [Unknown]
  - Transaminases increased [Unknown]
  - Pneumothorax [Recovering/Resolving]
  - Constipation [Unknown]
  - Lung disorder [Recovering/Resolving]
  - Neutrophil count decreased [Unknown]
  - Platelet count decreased [Unknown]
  - Epistaxis [Unknown]
  - Malaise [Unknown]

NARRATIVE: CASE EVENT DATE: 20170130
